FAERS Safety Report 5042607-7 (Version None)
Quarter: 2006Q2

REPORT INFORMATION
  Report Type: 
  Country: None (occurrence: None)
  Receive Date: 20060623
  Receipt Date: 20060612
  Transmission Date: 20061013
  Serious: Yes (Other)
  Sender: FDA-Public Use
  Company Number: 200612474BCC

PATIENT
  Age: 17 Year
  Sex: Male
  Weight: 77.1115 kg

DRUGS (1)
  1. MIDOL (NAPROXEN SODIUM) [Suspect]
     Dosage: ONCE, ORAL
     Route: 048
     Dates: start: 20060612

REACTIONS (1)
  - ERECTION INCREASED [None]
